FAERS Safety Report 5387761-2 (Version None)
Quarter: 2007Q3

REPORT INFORMATION
  Report Type: 
  Country: None (occurrence: None)
  Receive Date: 20070716
  Receipt Date: 20070709
  Transmission Date: 20080115
  Serious: Yes (Other)
  Sender: FDA-Public Use
  Company Number: D0053908A

PATIENT
  Age: 40 Year
  Sex: Male
  Weight: 80 kg

DRUGS (3)
  1. COMBIVIR [Suspect]
     Dosage: 450MG TWICE PER DAY
     Route: 048
     Dates: start: 20070226, end: 20070326
  2. KALETRA [Suspect]
     Dosage: 500MG TWICE PER DAY
     Route: 048
     Dates: start: 20070227, end: 20070326
  3. CRIXIVAN [Concomitant]
     Dosage: 800MG THREE TIMES PER DAY
     Route: 048
     Dates: start: 20070226, end: 20070227

REACTIONS (8)
  - ABDOMINAL PAIN UPPER [None]
  - BLOOD AMYLASE INCREASED [None]
  - BLOOD BILIRUBIN INCREASED [None]
  - CHOLANGITIS [None]
  - DIARRHOEA [None]
  - DISTURBANCE IN ATTENTION [None]
  - LIPASE INCREASED [None]
  - MEMORY IMPAIRMENT [None]
